FAERS Safety Report 23844894 (Version 2)
Quarter: 2024Q2

REPORT INFORMATION
  Report Type: Spontaneous
  Country: US (occurrence: US)
  Receive Date: 20240511
  Receipt Date: 20240608
  Transmission Date: 20240715
  Serious: Yes (Hospitalization, Other)
  Sender: FDA-Public Use
  Company Number: US-NOVITIUMPHARMA-2024USNVP00772

PATIENT
  Age: 90 Year
  Sex: Male

DRUGS (2)
  1. FLUDROCORTISONE ACETATE [Suspect]
     Active Substance: FLUDROCORTISONE ACETATE
     Indication: Addison^s disease
  2. HYDROCORTISONE [Concomitant]
     Active Substance: HYDROCORTISONE
     Indication: Addison^s disease

REACTIONS (5)
  - Diverticulitis intestinal perforated [Recovered/Resolved]
  - Pneumoretroperitoneum [Recovered/Resolved]
  - Pneumomediastinum [Recovered/Resolved]
  - Emphysema [Recovered/Resolved]
  - Abdominal abscess [Unknown]
